FAERS Safety Report 6535900-X (Version None)
Quarter: 2010Q1

REPORT INFORMATION
  Report Type: 
  Country: None (occurrence: None)
  Receive Date: 20100105
  Receipt Date: 20091223
  Transmission Date: 20100710
  Serious: Yes (Other)
  Sender: FDA-Public Use
  Company Number: POMP-1000811

PATIENT
  Age: 32 Year
  Sex: Male
  Weight: 78 kg

DRUGS (3)
  1. MYOZYME [Suspect]
     Indication: GLYCOGEN STORAGE DISEASE TYPE II
     Dosage: 20 MG/KG, INTRAVENOUS
     Route: 042
     Dates: start: 20070126
  2. DESLORATADINE [Concomitant]
  3. FENOTEROL (FENOTEROL) [Concomitant]

REACTIONS (3)
  - DYSSTASIA [None]
  - MOBILITY DECREASED [None]
  - PAIN IN EXTREMITY [None]
